FAERS Safety Report 24198903 (Version 2)
Quarter: 2024Q4

REPORT INFORMATION
  Report Type: Spontaneous
  Country: US (occurrence: US)
  Receive Date: 20240812
  Receipt Date: 20241026
  Transmission Date: 20250114
  Serious: No
  Sender: Kenvue
  Company Number: US-JNJFOC-20240776136

PATIENT
  Sex: Female

DRUGS (3)
  1. MENS ROGAINE EXTRA STRENGTH [Suspect]
     Active Substance: MINOXIDIL
     Indication: Alopecia
     Dosage: USE A A LOT, APPLY RIGHT TO HEAD. ALMOST EVERY DAY.
     Route: 061
     Dates: start: 20210601
  2. IVERMECTIN [Concomitant]
     Active Substance: IVERMECTIN
     Indication: Mite allergy
     Dosage: UNK
     Route: 065
     Dates: start: 202406, end: 202408
  3. PREMARIN [Concomitant]
     Active Substance: ESTROGENS, CONJUGATED
     Indication: Hot flush
     Dosage: UNK
     Route: 065
     Dates: start: 1999

REACTIONS (4)
  - Product use issue [Unknown]
  - Therapeutic response unexpected [Unknown]
  - Alopecia [Unknown]
  - Intentional product misuse [Unknown]

NARRATIVE: CASE EVENT DATE: 20210101
